FAERS Safety Report 4381998-7 (Version None)
Quarter: 2004Q2

REPORT INFORMATION
  Report Type: 
  Country: None (occurrence: None)
  Receive Date: 20040615
  Receipt Date: 20040511
  Transmission Date: 20050107
  Serious: Yes (Other)
  Sender: FDA-Public Use
  Company Number: 24210

PATIENT
  Sex: Female

DRUGS (2)
  1. ALDARA [Suspect]
     Indication: BASAL CELL CARCINOMA
     Dosage: 5 TIMES A WEEK FOR 1 WEEKS
     Route: 061
  2. ENBREL (ETANERCEPT) [Concomitant]

REACTIONS (4)
  - APPLICATION SITE REACTION [None]
  - ERYTHEMA [None]
  - IMPAIRED HEALING [None]
  - SKIN NECROSIS [None]
